FAERS Safety Report 18638532 (Version 1)
Quarter: 2020Q4

REPORT INFORMATION
  Report Type: Report from Study
  Country: NL (occurrence: NL)
  Receive Date: 20201219
  Receipt Date: 20201219
  Transmission Date: 20210114
  Serious: Yes (Hospitalization)
  Sender: FDA-Public Use
  Company Number: NL-SHIRE-NL201944862

PATIENT
  Sex: Female
  Weight: 94 kg

DRUGS (20)
  1. CARBASALATE CALCIUM [Concomitant]
     Active Substance: CARBASPIRIN CALCIUM
     Indication: ERYSIPELAS
  2. PREGABALIN. [Concomitant]
     Active Substance: PREGABALIN
     Indication: PHANTOM LIMB SYNDROME
  3. HUMAN IMMUNOGLOBULIN; HYALURONIDASE [Suspect]
     Active Substance: HUMAN IMMUNOGLOBULIN G\HYALURONIDASE RECOMBINANT HUMAN
     Indication: IMMUNODEFICIENCY
     Dosage: 125-400 ML (12.5- 15 ML ACTUAL ADMINISTERED VOLUME OF RHUPH20 (ML)), 10 DAYS TO EVERY 4 WK
     Route: 058
     Dates: start: 20150825, end: 20170707
  4. SIFROL [Concomitant]
     Active Substance: PRAMIPEXOLE
     Indication: RESTLESS LEGS SYNDROME
  5. FOSTER [PIROXICAM] [Concomitant]
     Indication: CHRONIC OBSTRUCTIVE PULMONARY DISEASE
  6. GABAPENTINE [Concomitant]
     Active Substance: GABAPENTIN
     Indication: PHANTOM LIMB SYNDROME
  7. PANTOPRAZOL [PANTOPRAZOLE] [Concomitant]
     Active Substance: PANTOPRAZOLE
     Indication: ABDOMINAL DISCOMFORT
  8. INEGY [Concomitant]
     Active Substance: EZETIMIBE\SIMVASTATIN
     Indication: DYSLIPIDAEMIA
  9. AMITRIPTYLINE [Concomitant]
     Active Substance: AMITRIPTYLINE
     Indication: BURNOUT SYNDROME
  10. TOUJEO [Concomitant]
     Active Substance: INSULIN GLARGINE
     Indication: DIABETES MELLITUS
  11. MELATONINE [Concomitant]
     Active Substance: MELATONIN
     Indication: SLEEP DISORDER
  12. AZITHROMYCINE [Concomitant]
     Active Substance: AZITHROMYCIN
     Indication: ERYSIPELAS
  13. EZETIMIBE. [Concomitant]
     Active Substance: EZETIMIBE
     Indication: DYSLIPIDAEMIA
  14. PANTOZOL [Concomitant]
     Active Substance: PANTOPRAZOLE SODIUM
     Indication: ABDOMINAL DISCOMFORT
  15. PAROXETINE. [Concomitant]
     Active Substance: PAROXETINE
     Indication: BURNOUT SYNDROME
  16. ACETYLSALICYLIC ACID [Concomitant]
     Active Substance: ASPIRIN
     Indication: PULMONARY EMBOLISM
  17. HUMAN IMMUNOGLOBULIN; HYALURONIDASE [Suspect]
     Active Substance: HUMAN IMMUNOGLOBULIN G\HYALURONIDASE RECOMBINANT HUMAN
     Dosage: 250 MILLILITER (12.5 ML ACTUAL ADMINISTERED VOLUME OF IMMUNOGLOBULIN (ML)), ONE DOSE
     Route: 058
     Dates: start: 20170717, end: 20170717
  18. LYRICA [Concomitant]
     Active Substance: PREGABALIN
     Indication: PHANTOM LIMB SYNDROME
  19. BUPRENORFINE GLENMARK [Concomitant]
     Indication: PHANTOM LIMB SYNDROME
  20. AMITRIPTYLINE [Concomitant]
     Active Substance: AMITRIPTYLINE
     Indication: PHANTOM LIMB SYNDROME

REACTIONS (2)
  - Erysipelas [Recovered/Resolved]
  - Phantom limb syndrome [Recovering/Resolving]

NARRATIVE: CASE EVENT DATE: 20160724
